FAERS Safety Report 23158820 (Version 1)
Quarter: 2023Q4

REPORT INFORMATION
  Report Type: Spontaneous
  Country: US (occurrence: US)
  Receive Date: 20231108
  Receipt Date: 20231108
  Transmission Date: 20240110
  Serious: No
  Sender: FDA-Public Use
  Company Number: US-Merck Healthcare KGaA-2023484672

PATIENT
  Age: 58 Year
  Sex: Male

DRUGS (1)
  1. BAVENCIO [Suspect]
     Active Substance: AVELUMAB
     Indication: Liposarcoma metastatic

REACTIONS (3)
  - Headache [Unknown]
  - Tinnitus [Unknown]
  - Decreased appetite [Unknown]
